FAERS Safety Report 11344018 (Version 5)
Quarter: 2017Q4

REPORT INFORMATION
  Report Type: Spontaneous
  Country: US (occurrence: US)
  Receive Date: 20150806
  Receipt Date: 20171107
  Transmission Date: 20180320
  Serious: Yes (Hospitalization)
  Sender: FDA-Public Use
  Company Number: US-JNJFOC-20150802851

PATIENT
  Age: 70 Year
  Sex: Male

DRUGS (22)
  1. LEVOFLOXACIN. [Concomitant]
     Active Substance: LEVOFLOXACIN
  2. LANTUS [Concomitant]
     Active Substance: INSULIN GLARGINE
     Indication: DIABETES MELLITUS
     Dosage: 30 UNITS EVERY MORNING
     Route: 058
  3. FLONASE [Concomitant]
     Active Substance: FLUTICASONE PROPIONATE
     Dosage: 1 SPRAY EACH NOSTRIL DAILY
  4. DOXYCYCLINE. [Concomitant]
     Active Substance: DOXYCYCLINE
     Dates: end: 20150615
  5. MOXIFLOXACIN. [Concomitant]
     Active Substance: MOXIFLOXACIN
     Dates: end: 20150715
  6. LASIX [Concomitant]
     Active Substance: FUROSEMIDE
     Dates: end: 20150715
  7. LANTUS [Concomitant]
     Active Substance: INSULIN GLARGINE
     Indication: DIABETES MELLITUS
     Dosage: 15 UNITS EVERY EVENING
     Route: 058
  8. LOSARTAN POTASSIUM/HCTZ [Concomitant]
     Active Substance: HYDROCHLOROTHIAZIDE\LOSARTAN POTASSIUM
  9. PREDNISONE. [Suspect]
     Active Substance: PREDNISONE
     Indication: PRODUCT USED FOR UNKNOWN INDICATION
     Dosage: BIG DOSES
     Route: 042
     Dates: start: 20171027
  10. TYLENOL [Concomitant]
     Active Substance: ACETAMINOPHEN
     Route: 048
  11. MULTIVITAMINS [Concomitant]
     Active Substance: VITAMINS
     Dosage: 1 TAB DAILY
     Route: 048
  12. PERCOCET [Concomitant]
     Active Substance: ACETAMINOPHEN\OXYCODONE HYDROCHLORIDE
     Indication: PAIN
     Dosage: 5-325 MG, PRN
     Route: 048
  13. BACTRIM [Concomitant]
     Active Substance: SULFAMETHOXAZOLE\TRIMETHOPRIM
  14. IMBRUVICA [Suspect]
     Active Substance: IBRUTINIB
     Indication: CHRONIC LYMPHOCYTIC LEUKAEMIA
     Route: 048
     Dates: start: 20150825
  15. PREDNISONE. [Suspect]
     Active Substance: PREDNISONE
     Indication: PRODUCT USED FOR UNKNOWN INDICATION
     Dosage: BIG DOSES
     Route: 042
     Dates: start: 20171025
  16. ALLOPURINOL. [Concomitant]
     Active Substance: ALLOPURINOL
  17. IMBRUVICA [Suspect]
     Active Substance: IBRUTINIB
     Indication: CHRONIC LYMPHOCYTIC LEUKAEMIA
     Route: 048
     Dates: start: 201401, end: 20150715
  18. SOTALOL. [Concomitant]
     Active Substance: SOTALOL
  19. LOSARTAN. [Concomitant]
     Active Substance: LOSARTAN
     Dates: end: 20150715
  20. HYTRIN [Concomitant]
     Active Substance: TERAZOSIN HYDROCHLORIDE
     Dosage: EVERY PM
     Route: 048
  21. ALBUTEROL. [Concomitant]
     Active Substance: ALBUTEROL
     Dates: end: 20150715
  22. DIGOXIN. [Concomitant]
     Active Substance: DIGOXIN

REACTIONS (15)
  - Pneumonia [Unknown]
  - Pleural effusion [Not Recovered/Not Resolved]
  - Dysphagia [Recovering/Resolving]
  - Blood pressure increased [Unknown]
  - Pericardial effusion [Recovering/Resolving]
  - Acute kidney injury [Not Recovered/Not Resolved]
  - Enterococcal infection [Recovering/Resolving]
  - Atrial fibrillation [Recovered/Resolved]
  - Proteus infection [Recovered/Resolved]
  - Pulmonary hypertension [Unknown]
  - Rash [Recovering/Resolving]
  - Dyspnoea [Recovering/Resolving]
  - Hypernatraemia [Recovered/Resolved]
  - Malaise [Unknown]
  - Diabetes mellitus [Unknown]

NARRATIVE: CASE EVENT DATE: 2015
